FAERS Safety Report 12295815 (Version 1)
Quarter: 2016Q2

REPORT INFORMATION
  Report Type: Spontaneous
  Country: US (occurrence: US)
  Receive Date: 20160422
  Receipt Date: 20160422
  Transmission Date: 20160815
  Serious: Yes (Other)
  Sender: FDA-Public Use
  Company Number: US-PURDUE PHARMA-USA-2016-0129018

PATIENT
  Sex: Male

DRUGS (3)
  1. BUPRENORPHINE (SIMILAR TO IND 50, 273) [Suspect]
     Active Substance: BUPRENORPHINE
     Indication: DRUG ABUSE
     Route: 062
  2. OXYCONTIN [Suspect]
     Active Substance: OXYCODONE HYDROCHLORIDE
     Indication: DRUG ABUSE
     Route: 048
  3. HEROIN [Suspect]
     Active Substance: DIACETYLMORPHINE
     Indication: DRUG ABUSE
     Route: 065

REACTIONS (2)
  - Substance abuse [Unknown]
  - Euphoric mood [Unknown]
